FAERS Safety Report 7534815-8 (Version None)
Quarter: 2011Q2

REPORT INFORMATION
  Report Type: 
  Country: None (occurrence: None)
  Receive Date: 20110609
  Receipt Date: 20080916
  Transmission Date: 20111010
  Serious: Yes (Other)
  Sender: FDA-Public Use
  Company Number: PHHY2008CA20541

PATIENT
  Sex: Female

DRUGS (1)
  1. SANDOSTATIN [Suspect]
     Indication: POST GASTRIC SURGERY SYNDROME
     Dosage: 30 MG, UNK
     Route: 030
     Dates: start: 20000910

REACTIONS (1)
  - ABDOMINAL SYMPTOM [None]
